FAERS Safety Report 5368757-3 (Version None)
Quarter: 2007Q2

REPORT INFORMATION
  Report Type: 
  Country: None (occurrence: None)
  Receive Date: 20070625
  Receipt Date: 20070531
  Transmission Date: 20071010
  Serious: No
  Sender: FDA-Public Use
  Company Number: US-BRISTOL-MYERS SQUIBB COMPANY-13798954

PATIENT
  Age: 51 Year
  Sex: Female
  Weight: 95 kg

DRUGS (7)
  1. ORENCIA [Suspect]
     Route: 042
     Dates: start: 20070523
  2. WELLBUTRIN [Concomitant]
  3. ZIAC [Concomitant]
  4. ZONISAMIDE [Concomitant]
  5. PERCOCET [Concomitant]
  6. OXYCODONE HCL [Concomitant]
  7. CLONAZEPAM [Concomitant]

REACTIONS (3)
  - CHILLS [None]
  - GAIT DISTURBANCE [None]
  - PYREXIA [None]
